FAERS Safety Report 4625381-5 (Version None)
Quarter: 2005Q2

REPORT INFORMATION
  Report Type: 
  Country: None (occurrence: None)
  Receive Date: 20050401
  Receipt Date: 20050327
  Transmission Date: 20051028
  Serious: Yes (Other)
  Sender: FDA-Public Use
  Company Number: PHBS2005CA04318

PATIENT
  Age: 14 Year
  Sex: Female

DRUGS (5)
  1. TRILEPTAL [Suspect]
     Indication: CONVULSION
     Dosage: 300 MG, BID
     Route: 048
     Dates: start: 20050323
  2. TRILEPTAL [Suspect]
     Dosage: 600 MG, TID
     Route: 048
  3. RIVOTRIL [Concomitant]
     Dosage: 4 MG, TID
  4. SABRIL [Concomitant]
     Dosage: 1000 MG, BID
  5. NEURONTIN [Concomitant]
     Dosage: 600 MG, TID

REACTIONS (7)
  - DIFFICULTY IN WALKING [None]
  - DYSARTHRIA [None]
  - FALL [None]
  - FEELING DRUNK [None]
  - HEADACHE [None]
  - PAIN IN EXTREMITY [None]
  - SOMNOLENCE [None]
